FAERS Safety Report 5222354-9 (Version None)
Quarter: 2007Q1

REPORT INFORMATION
  Report Type: 
  Country: None (occurrence: None)
  Receive Date: 20070129
  Receipt Date: 20070124
  Transmission Date: 20070707
  Serious: Yes (Death, Life-Threatening, Hospitalization, Disabling, Other)
  Sender: FDA-Public Use
  Company Number: US-MERCK-0701USA04262

PATIENT
  Age: 29 Year
  Sex: Male

DRUGS (4)
  1. MEFOXIN [Suspect]
     Indication: PROPHYLAXIS
     Route: 042
     Dates: start: 19991221, end: 19991221
  2. PRILOSEC [Concomitant]
     Route: 065
  3. REGLAN [Concomitant]
     Route: 065
  4. DULCOLAX [Concomitant]
     Route: 065

REACTIONS (7)
  - BED REST [None]
  - BLOOD POTASSIUM DECREASED [None]
  - DEHYDRATION [None]
  - DIARRHOEA [None]
  - PULMONARY EMBOLISM [None]
  - PYREXIA [None]
  - SHOCK [None]
